FAERS Safety Report 9325598 (Version 2)
Quarter: 2013Q2

REPORT INFORMATION
  Report Type: Spontaneous
  Country: GB (occurrence: GB)
  Receive Date: 20130604
  Receipt Date: 20130606
  Transmission Date: 20140414
  Serious: Yes (Hospitalization)
  Sender: FDA-Public Use
  Company Number: GB-ROCHE-1231199

PATIENT
  Sex: Male

DRUGS (6)
  1. AVASTIN [Suspect]
     Indication: COLORECTAL CANCER
     Dosage: 25 MG/ML
     Route: 042
     Dates: start: 20130501, end: 20130529
  2. OXALIPLATIN [Suspect]
     Indication: COLORECTAL CANCER
     Route: 042
     Dates: start: 20130501, end: 20130529
  3. LOPERAMIDE [Concomitant]
     Indication: DIARRHOEA
     Route: 048
     Dates: start: 20130501
  4. METOCLOPRAMIDE [Concomitant]
     Indication: NAUSEA
     Dosage: 10-20 MG,
     Route: 065
     Dates: start: 20130501
  5. BENZYDAMINE [Concomitant]
     Indication: MUCOSAL INFLAMMATION
     Route: 050
     Dates: start: 20130501
  6. CAPECITABINE [Concomitant]
     Indication: COLORECTAL CANCER
     Route: 048
     Dates: start: 20130501, end: 20130529

REACTIONS (5)
  - Neurological symptom [Unknown]
  - Syncope [Unknown]
  - Loss of consciousness [Recovered/Resolved]
  - Vomiting [Recovered/Resolved]
  - Feeling cold [Recovered/Resolved]
